FAERS Safety Report 8961896 (Version 1)
Quarter: 2012Q4

REPORT INFORMATION
  Report Type: 
  Country: US (occurrence: US)
  Receive Date: 20121212
  Receipt Date: 20121212
  Transmission Date: 20130627
  Serious: Yes (Hospitalization)
  Sender: FDA-Public Use
  Company Number: US-ASTRAZENECA-2012SE91021

PATIENT
  Age: 63 Year
  Sex: Male
  Weight: 86.2 kg

DRUGS (11)
  1. NEXIUM [Suspect]
     Indication: GASTROOESOPHAGEAL REFLUX DISEASE
     Route: 048
     Dates: start: 201005, end: 201011
  2. NEXIUM [Suspect]
     Indication: GASTROOESOPHAGEAL REFLUX DISEASE
     Route: 048
     Dates: start: 20111202, end: 20111228
  3. NEXIUM [Suspect]
     Indication: GASTROOESOPHAGEAL REFLUX DISEASE
     Route: 048
     Dates: start: 20120101, end: 20121111
  4. LISINOPRIL [Suspect]
     Indication: HYPERTENSION
     Route: 048
  5. TOPROL XL [Suspect]
     Indication: HYPERTENSION
     Route: 048
  6. TOPROL XL [Suspect]
     Indication: HYPERTENSION
     Route: 048
  7. TOPROL XL [Suspect]
     Indication: HYPERTENSION
     Route: 048
  8. BABY ASPIRIN [Concomitant]
     Indication: ANTICOAGULANT THERAPY
     Route: 048
     Dates: start: 2007
  9. PLAVIX [Concomitant]
     Indication: HYPERTENSION
  10. COUMADIN [Concomitant]
     Indication: HYPERTENSION
  11. LIPITOR [Concomitant]
     Indication: BLOOD CHOLESTEROL INCREASED

REACTIONS (9)
  - Myocardial infarction [Unknown]
  - Hypertension [Unknown]
  - Blood cholesterol increased [Unknown]
  - Weight increased [Unknown]
  - Muscle spasms [Unknown]
  - Blood pressure fluctuation [Unknown]
  - Abdominal pain upper [Unknown]
  - Diarrhoea [Unknown]
  - Drug dose omission [Unknown]
